FAERS Safety Report 10110107 (Version 4)
Quarter: 2014Q3

REPORT INFORMATION
  Report Type: Spontaneous
  Country: JP (occurrence: JP)
  Receive Date: 20140425
  Receipt Date: 20140806
  Transmission Date: 20150326
  Serious: Yes (Death, Other)
  Sender: FDA-Public Use
  Company Number: PHHY2014JP049568

PATIENT
  Age: 17 Year
  Sex: Female

DRUGS (12)
  1. BORTEZOMIB [Suspect]
     Active Substance: BORTEZOMIB
     Dosage: 1.3 MG/M2 (2DOSES/WEEK FOR 2 WEEKS)
  2. DAUNOMYCIN [Suspect]
     Active Substance: DAUNORUBICIN
     Dosage: 25 MG/M2, ON DAY 10, 11, 31 AND 32
  3. RITUXIMAB [Suspect]
     Active Substance: RITUXIMAB
     Indication: B-CELL TYPE ACUTE LEUKAEMIA
  4. PREDNISOLONE. [Suspect]
     Active Substance: PREDNISOLONE
     Dosage: 60 MG/M2 ON DAYS 1 TO 35
  5. DEXAMETHASONE. [Suspect]
     Active Substance: DEXAMETHASONE
     Dosage: 40 MG/ BODY ON DAYS 1 TO 4 AND DAYS 11 TO 14
  6. VINCRISTINE [Suspect]
     Active Substance: VINCRISTINE
     Dosage: 1.5 MG/M2, ON DAYS 8, 15, 22, 29 AND 36
  7. GABAPENTIN. [Concomitant]
     Active Substance: GABAPENTIN
     Indication: PROPHYLAXIS
     Route: 048
  8. DOXORUBICIN [Suspect]
     Active Substance: DOXORUBICIN
     Dosage: 25 MG/M2, ON DAYS 4 TO 5
  9. VINCRISTINE [Suspect]
     Active Substance: VINCRISTINE
     Dosage: 2 MG/M2, ON DAYS 4 AND 11
  10. L-ASPARAGINASE [Suspect]
     Active Substance: ASPARAGINASE
     Indication: B-CELL TYPE ACUTE LEUKAEMIA
  11. SANDOSTATIN [Suspect]
     Active Substance: OCTREOTIDE ACETATE
     Indication: B-CELL TYPE ACUTE LEUKAEMIA
     Route: 058
  12. CYCLOPHOSPHAMIDE. [Suspect]
     Active Substance: CYCLOPHOSPHAMIDE
     Dosage: 1000 MG/M2

REACTIONS (8)
  - Leukaemia recurrent [Unknown]
  - Neutrophil count decreased [Unknown]
  - Haematotoxicity [Unknown]
  - Blast cells present [Unknown]
  - Bronchopulmonary aspergillosis [Fatal]
  - Bone marrow failure [Unknown]
  - Pancreatitis acute [Unknown]
  - Pneumonia fungal [Recovering/Resolving]
